FAERS Safety Report 6953782-9 (Version None)
Quarter: 2010Q3

REPORT INFORMATION
  Report Type: 
  Country: None (occurrence: None)
  Receive Date: 20100829
  Receipt Date: 20100623
  Transmission Date: 20110219
  Serious: No
  Sender: FDA-Public Use
  Company Number: US-ABBOTT-10P-163-0653355-00

PATIENT
  Sex: Female
  Weight: 61.744 kg

DRUGS (5)
  1. NIASPAN [Suspect]
     Indication: LOW DENSITY LIPOPROTEIN INCREASED
     Dosage: AT BEDTIME
     Dates: start: 20100619
  2. GEMFIBROZIL [Concomitant]
     Indication: LOW DENSITY LIPOPROTEIN INCREASED
  3. GEMFIBROZIL [Concomitant]
     Indication: CEREBROVASCULAR ACCIDENT PROPHYLAXIS
  4. PLAVIX [Concomitant]
     Indication: LOW DENSITY LIPOPROTEIN INCREASED
  5. PLAVIX [Concomitant]
     Indication: CEREBROVASCULAR ACCIDENT PROPHYLAXIS

REACTIONS (2)
  - FLUSHING [None]
  - PARAESTHESIA [None]
